FAERS Safety Report 22393577 (Version 1)
Quarter: 2023Q2

REPORT INFORMATION
  Report Type: Spontaneous
  Country: KR (occurrence: KR)
  Receive Date: 20230601
  Receipt Date: 20230601
  Transmission Date: 20230721
  Serious: Yes (Hospitalization)
  Sender: FDA-Public Use
  Company Number: KR-ORGANON-O2305KOR003058

PATIENT
  Age: 81 Year
  Sex: Male
  Weight: 61 kg

DRUGS (10)
  1. COZAAR [Suspect]
     Active Substance: LOSARTAN POTASSIUM
     Indication: Essential hypertension
     Dosage: 25 MILLIGRAM, QD, TABLET UNCLASSIFIED
     Route: 048
     Dates: start: 20201119, end: 20210221
  2. ASPIRIN [Concomitant]
     Active Substance: ASPIRIN
     Indication: Acute myocardial infarction
     Dosage: 100 MILLIGRAM, QD, TABLET UNCLASSIFIED
     Route: 048
     Dates: start: 20181112
  3. APIXABAN [Concomitant]
     Active Substance: APIXABAN
     Indication: Atrial fibrillation
     Dosage: 2.5 MILLIGRAM, BID, TABLET UNCLASSIFIED
     Route: 048
     Dates: start: 20201119
  4. APIXABAN [Concomitant]
     Active Substance: APIXABAN
     Indication: Atrial flutter
  5. SPIRONOLACTONE [Concomitant]
     Active Substance: SPIRONOLACTONE
     Indication: Cardiac failure congestive
     Dosage: 12.5 MILLIGRAM, QD, TABLET UNCLASSIFIED
     Route: 048
     Dates: start: 20200113
  6. ATORVASTATIN CALCIUM [Concomitant]
     Active Substance: ATORVASTATIN CALCIUM
     Indication: Hyperlipidaemia
     Dosage: 20 MILLIGRAM, QD, TABLET UNCLASSIFIED
     Route: 048
     Dates: start: 20130809
  7. OMEGA-3-ACID ETHYL ESTER [Concomitant]
     Active Substance: OMEGA-3-ACID ETHYL ESTERS
     Indication: Hyperlipidaemia
     Dosage: 1 GRAM, QD,
     Route: 048
     Dates: start: 20200323
  8. RABEPRAZOLE SODIUM [Concomitant]
     Active Substance: RABEPRAZOLE SODIUM
     Indication: Gastrooesophageal reflux disease
     Dosage: 5 MILLIGRAM, QD, TABLET UNCLASSIFIED
     Route: 048
     Dates: start: 20200618, end: 20210220
  9. TRIAZOLAM [Concomitant]
     Active Substance: TRIAZOLAM
     Indication: Insomnia
     Dosage: 0.25 MILLIGRAM, TID, TABLET UNCLASSIFIED
     Route: 048
     Dates: start: 20200924
  10. METFORMIN HYDROCHLORIDE [Concomitant]
     Active Substance: METFORMIN HYDROCHLORIDE
     Indication: Diabetes mellitus
     Dosage: 500 MILLIGRAM, QD, TABLET UNCLASSIFIED
     Route: 048
     Dates: start: 2019

REACTIONS (1)
  - Cardiac failure [Recovered/Resolved]

NARRATIVE: CASE EVENT DATE: 20210215
